FAERS Safety Report 11524792 (Version 1)
Quarter: 2015Q3

REPORT INFORMATION
  Report Type: Report from Study
  Country: JP (occurrence: JP)
  Receive Date: 20150918
  Receipt Date: 20150918
  Transmission Date: 20151125
  Serious: Yes (Death, Hospitalization, Disabling)
  Sender: FDA-Public Use
  Company Number: JP-JNJFOC-20150912118

PATIENT
  Age: 66 Year
  Sex: Male
  Weight: 45 kg

DRUGS (75)
  1. ETHAMBUTOL HYDROCHLORIDE. [Concomitant]
     Active Substance: ETHAMBUTOL HYDROCHLORIDE
     Indication: MYCOBACTERIUM AVIUM COMPLEX INFECTION
     Route: 048
     Dates: start: 20080503, end: 20080829
  2. GRAN [Concomitant]
     Active Substance: FILGRASTIM
     Indication: HIV INFECTION
     Route: 058
     Dates: start: 20080519, end: 20080519
  3. GRAN [Concomitant]
     Active Substance: FILGRASTIM
     Indication: HIV INFECTION
     Route: 058
     Dates: start: 20080918, end: 20080918
  4. ALBUMIN [Concomitant]
     Active Substance: ALBUMIN (HUMAN)
     Indication: KAPOSI^S SARCOMA AIDS RELATED
     Route: 042
     Dates: start: 20080416, end: 20080418
  5. ALBUMIN [Concomitant]
     Active Substance: ALBUMIN (HUMAN)
     Indication: KAPOSI^S SARCOMA AIDS RELATED
     Route: 042
     Dates: start: 20081004, end: 20081006
  6. CONCENTRATED RED CELLS [Concomitant]
     Active Substance: HUMAN RED BLOOD CELL
     Indication: PROPHYLAXIS
     Route: 041
     Dates: start: 20080821, end: 20080821
  7. DOXORUBICIN HYDROCHLORIDE. [Suspect]
     Active Substance: DOXORUBICIN HYDROCHLORIDE
     Indication: KAPOSI^S SARCOMA AIDS RELATED
     Route: 042
     Dates: start: 20080623, end: 20080623
  8. DOXORUBICIN HYDROCHLORIDE. [Suspect]
     Active Substance: DOXORUBICIN HYDROCHLORIDE
     Indication: KAPOSI^S SARCOMA AIDS RELATED
     Route: 042
     Dates: start: 20080421, end: 20080421
  9. RIFABUTIN. [Concomitant]
     Active Substance: RIFABUTIN
     Indication: MYCOBACTERIUM AVIUM COMPLEX INFECTION
     Route: 065
     Dates: start: 20080610, end: 20080829
  10. SULFADOXINE PYRIMETHAMINE [Concomitant]
     Indication: MYCOBACTERIUM AVIUM COMPLEX INFECTION
     Route: 065
     Dates: start: 20080420, end: 20080603
  11. PYRIMETHAMINE [Concomitant]
     Active Substance: PYRIMETHAMINE
     Indication: MYCOBACTERIUM AVIUM COMPLEX INFECTION
     Route: 048
     Dates: start: 20080419, end: 20080419
  12. SULFAMETHOXAZOLE [Concomitant]
     Active Substance: SULFAMETHOXAZOLE
     Indication: MYCOBACTERIUM AVIUM COMPLEX INFECTION
     Route: 048
     Dates: start: 20080419, end: 20080429
  13. GRAN [Concomitant]
     Active Substance: FILGRASTIM
     Indication: HIV INFECTION
     Route: 058
     Dates: start: 20080630, end: 20080630
  14. CLINDAMYCIN [Concomitant]
     Active Substance: CLINDAMYCIN\CLINDAMYCIN PHOSPHATE
     Indication: MYCOBACTERIUM AVIUM COMPLEX INFECTION
     Route: 048
     Dates: start: 20080430, end: 20080603
  15. CONCENTRATED RED CELLS [Concomitant]
     Active Substance: HUMAN RED BLOOD CELL
     Indication: PROPHYLAXIS
     Route: 041
     Dates: start: 20080731, end: 20080731
  16. REMINARON [Concomitant]
     Active Substance: GABEXATE MESYLATE
     Route: 041
     Dates: start: 20080924, end: 20081110
  17. DOXORUBICIN HYDROCHLORIDE. [Suspect]
     Active Substance: DOXORUBICIN HYDROCHLORIDE
     Indication: KAPOSI^S SARCOMA AIDS RELATED
     Route: 042
     Dates: start: 20080512, end: 20080512
  18. CELECOXIB. [Suspect]
     Active Substance: CELECOXIB
     Indication: ARTHRALGIA
     Route: 048
     Dates: start: 20080524, end: 20080729
  19. ISENTRESS [Concomitant]
     Active Substance: RALTEGRAVIR POTASSIUM
     Indication: HIV INFECTION
     Route: 048
     Dates: start: 20081029, end: 20081119
  20. GRAN [Concomitant]
     Active Substance: FILGRASTIM
     Indication: HIV INFECTION
     Route: 058
     Dates: start: 20080725, end: 20080725
  21. CONCENTRATED RED CELLS [Concomitant]
     Active Substance: HUMAN RED BLOOD CELL
     Indication: PROPHYLAXIS
     Route: 041
     Dates: start: 20080531, end: 20080531
  22. FUNGUARD [Concomitant]
     Active Substance: MICAFUNGIN SODIUM
     Route: 041
     Dates: start: 20080929, end: 20081119
  23. DOXORUBICIN HYDROCHLORIDE. [Suspect]
     Active Substance: DOXORUBICIN HYDROCHLORIDE
     Indication: KAPOSI^S SARCOMA AIDS RELATED
     Dosage: 8 CYCLE
     Route: 042
     Dates: start: 20081021, end: 20081021
  24. ZIAGEN [Concomitant]
     Active Substance: ABACAVIR SULFATE
     Indication: HIV INFECTION
     Route: 048
     Dates: start: 20080610, end: 20080829
  25. GRAN [Concomitant]
     Active Substance: FILGRASTIM
     Indication: HIV INFECTION
     Route: 058
     Dates: start: 20080705, end: 20080705
  26. GRAN [Concomitant]
     Active Substance: FILGRASTIM
     Indication: HIV INFECTION
     Route: 058
     Dates: start: 20080611, end: 20080611
  27. CONCENTRATED RED CELLS [Concomitant]
     Active Substance: HUMAN RED BLOOD CELL
     Indication: PROPHYLAXIS
     Route: 041
     Dates: start: 20080705, end: 20080705
  28. CONCENTRATED RED CELLS [Concomitant]
     Active Substance: HUMAN RED BLOOD CELL
     Indication: PROPHYLAXIS
     Route: 041
     Dates: start: 20080623, end: 20080623
  29. CONCENTRATED RED CELLS [Concomitant]
     Active Substance: HUMAN RED BLOOD CELL
     Indication: PROPHYLAXIS
     Route: 041
     Dates: start: 20080618, end: 20080618
  30. CONCENTRATED RED CELLS [Concomitant]
     Active Substance: HUMAN RED BLOOD CELL
     Indication: PROPHYLAXIS
     Route: 041
     Dates: start: 20080601, end: 20080601
  31. DOXORUBICIN HYDROCHLORIDE. [Suspect]
     Active Substance: DOXORUBICIN HYDROCHLORIDE
     Indication: KAPOSI^S SARCOMA AIDS RELATED
     Dosage: 9 CYCLE
     Route: 042
     Dates: start: 20081112, end: 20081112
  32. DOXORUBICIN HYDROCHLORIDE. [Suspect]
     Active Substance: DOXORUBICIN HYDROCHLORIDE
     Indication: KAPOSI^S SARCOMA AIDS RELATED
     Dosage: 6 CYCLE
     Route: 042
     Dates: start: 20080911, end: 20080911
  33. DOXORUBICIN HYDROCHLORIDE. [Suspect]
     Active Substance: DOXORUBICIN HYDROCHLORIDE
     Indication: KAPOSI^S SARCOMA AIDS RELATED
     Dosage: 5 CYCLE
     Route: 042
     Dates: start: 20080821, end: 20080821
  34. KALETRA [Concomitant]
     Active Substance: LOPINAVIR\RITONAVIR
     Indication: HIV INFECTION
     Route: 048
     Dates: start: 20081029, end: 20081119
  35. EPIVIR [Concomitant]
     Active Substance: LAMIVUDINE
     Indication: HIV INFECTION
     Route: 048
     Dates: start: 20081029, end: 20081119
  36. RIFABUTIN. [Concomitant]
     Active Substance: RIFABUTIN
     Indication: MYCOBACTERIUM AVIUM COMPLEX INFECTION
     Route: 065
     Dates: start: 20080503, end: 20080609
  37. GRAN [Concomitant]
     Active Substance: FILGRASTIM
     Indication: HIV INFECTION
     Route: 058
     Dates: start: 20080716, end: 20080716
  38. ALBUMIN [Concomitant]
     Active Substance: ALBUMIN (HUMAN)
     Indication: KAPOSI^S SARCOMA AIDS RELATED
     Route: 042
     Dates: start: 20081102, end: 20081104
  39. MEROPENEM HYDRATE [Concomitant]
     Active Substance: MEROPENEM
     Route: 041
     Dates: start: 20080604, end: 20080614
  40. CONCENTRATED RED CELLS [Concomitant]
     Active Substance: HUMAN RED BLOOD CELL
     Indication: PROPHYLAXIS
     Route: 041
     Dates: start: 20081017, end: 20081018
  41. CONCENTRATED RED CELLS [Concomitant]
     Active Substance: HUMAN RED BLOOD CELL
     Indication: PROPHYLAXIS
     Route: 041
     Dates: start: 20080714, end: 20080714
  42. CONCENTRATED RED CELLS [Concomitant]
     Active Substance: HUMAN RED BLOOD CELL
     Indication: PROPHYLAXIS
     Route: 041
     Dates: start: 20080611, end: 20080611
  43. CONCENTRATED RED CELLS [Concomitant]
     Active Substance: HUMAN RED BLOOD CELL
     Indication: PROPHYLAXIS
     Route: 041
     Dates: start: 20081113, end: 20081114
  44. AMBISOME [Concomitant]
     Active Substance: AMPHOTERICIN B
     Route: 041
     Dates: start: 20081009, end: 20081119
  45. DOXORUBICIN HYDROCHLORIDE. [Suspect]
     Active Substance: DOXORUBICIN HYDROCHLORIDE
     Indication: KAPOSI^S SARCOMA AIDS RELATED
     Route: 042
     Dates: start: 20080602, end: 20080602
  46. CALCIUM FOLINATE [Concomitant]
     Active Substance: LEUCOVORIN CALCIUM
     Indication: MYCOBACTERIUM AVIUM COMPLEX INFECTION
     Route: 065
     Dates: start: 20080419, end: 20080429
  47. EPZICOM [Concomitant]
     Active Substance: ABACAVIR SULFATE\LAMIVUDINE
     Indication: HIV INFECTION
     Route: 048
     Dates: start: 20080830, end: 20080927
  48. GRAN [Concomitant]
     Active Substance: FILGRASTIM
     Indication: HIV INFECTION
     Route: 058
     Dates: start: 20080524, end: 20080524
  49. GRAN [Concomitant]
     Active Substance: FILGRASTIM
     Indication: HIV INFECTION
     Route: 058
     Dates: start: 20081019, end: 20081019
  50. GRAN [Concomitant]
     Active Substance: FILGRASTIM
     Indication: HIV INFECTION
     Route: 058
     Dates: start: 20080903, end: 20080903
  51. GRAN [Concomitant]
     Active Substance: FILGRASTIM
     Indication: HIV INFECTION
     Route: 058
     Dates: start: 20080731, end: 20080731
  52. GRAN [Concomitant]
     Active Substance: FILGRASTIM
     Indication: HIV INFECTION
     Route: 058
     Dates: start: 20080704, end: 20080704
  53. GRAN [Concomitant]
     Active Substance: FILGRASTIM
     Indication: HIV INFECTION
     Route: 058
     Dates: start: 20080625, end: 20080625
  54. GRAN [Concomitant]
     Active Substance: FILGRASTIM
     Indication: HIV INFECTION
     Route: 058
     Dates: start: 20080620, end: 20080620
  55. ALBUMIN [Concomitant]
     Active Substance: ALBUMIN (HUMAN)
     Indication: KAPOSI^S SARCOMA AIDS RELATED
     Route: 042
     Dates: start: 20081011, end: 20081013
  56. SULFAMETHOXAZOLE AND TRIMETHOPRIM [Concomitant]
     Active Substance: SULFAMETHOXAZOLE\TRIMETHOPRIM
     Indication: MYCOBACTERIUM AVIUM COMPLEX INFECTION
     Route: 048
     Dates: start: 20080415, end: 20080418
  57. CONCENTRATED RED CELLS [Concomitant]
     Active Substance: HUMAN RED BLOOD CELL
     Indication: PROPHYLAXIS
     Route: 041
     Dates: start: 20080829, end: 20080830
  58. CONCENTRATED RED CELLS [Concomitant]
     Active Substance: HUMAN RED BLOOD CELL
     Indication: PROPHYLAXIS
     Route: 041
     Dates: start: 20080502, end: 20080504
  59. CONCENTRATED RED CELLS [Concomitant]
     Active Substance: HUMAN RED BLOOD CELL
     Indication: PROPHYLAXIS
     Route: 041
     Dates: start: 20080421, end: 20080422
  60. DOXORUBICIN HYDROCHLORIDE. [Suspect]
     Active Substance: DOXORUBICIN HYDROCHLORIDE
     Indication: KAPOSI^S SARCOMA AIDS RELATED
     Dosage: 7 CYCLE
     Route: 042
     Dates: start: 20081007, end: 20081007
  61. KALETRA [Concomitant]
     Active Substance: LOPINAVIR\RITONAVIR
     Indication: HIV INFECTION
     Route: 048
     Dates: start: 20080610, end: 20080927
  62. ATOVAQUONE. [Concomitant]
     Active Substance: ATOVAQUONE
     Indication: HIV INFECTION
     Route: 048
     Dates: start: 20080604, end: 20081119
  63. CLARITH [Concomitant]
     Active Substance: CLARITHROMYCIN
     Indication: MYCOBACTERIUM AVIUM COMPLEX INFECTION
     Route: 048
     Dates: start: 20080503, end: 20080829
  64. GRAN [Concomitant]
     Active Substance: FILGRASTIM
     Indication: HIV INFECTION
     Route: 058
     Dates: start: 20080707, end: 20080707
  65. ALBUMIN [Concomitant]
     Active Substance: ALBUMIN (HUMAN)
     Indication: KAPOSI^S SARCOMA AIDS RELATED
     Route: 042
     Dates: start: 20080502, end: 20080504
  66. CONCENTRATED RED CELLS [Concomitant]
     Active Substance: HUMAN RED BLOOD CELL
     Indication: PROPHYLAXIS
     Route: 041
     Dates: start: 20080929, end: 20080930
  67. CONCENTRATED RED CELLS [Concomitant]
     Active Substance: HUMAN RED BLOOD CELL
     Indication: PROPHYLAXIS
     Route: 041
     Dates: start: 20081022, end: 20081022
  68. CONCENTRATED RED CELLS [Concomitant]
     Active Substance: HUMAN RED BLOOD CELL
     Indication: PROPHYLAXIS
     Route: 041
     Dates: start: 20080811, end: 20080811
  69. EPIVIR [Concomitant]
     Active Substance: LAMIVUDINE
     Indication: HIV INFECTION
     Route: 048
     Dates: start: 20080610, end: 20080829
  70. SULFADIAZINE. [Concomitant]
     Active Substance: SULFADIAZINE
     Indication: CEREBRAL TOXOPLASMOSIS
     Route: 065
     Dates: start: 20080418, end: 20080604
  71. GRAN [Concomitant]
     Active Substance: FILGRASTIM
     Indication: HIV INFECTION
     Route: 058
     Dates: start: 20081026, end: 20081026
  72. GRAN [Concomitant]
     Active Substance: FILGRASTIM
     Indication: HIV INFECTION
     Route: 058
     Dates: start: 20080922, end: 20080922
  73. ALBUMIN [Concomitant]
     Active Substance: ALBUMIN (HUMAN)
     Indication: KAPOSI^S SARCOMA AIDS RELATED
     Route: 042
     Dates: start: 20080531, end: 20080531
  74. ALBUMIN [Concomitant]
     Active Substance: ALBUMIN (HUMAN)
     Indication: KAPOSI^S SARCOMA AIDS RELATED
     Route: 042
     Dates: start: 20080605, end: 20080607
  75. CONCENTRATED RED CELLS [Concomitant]
     Active Substance: HUMAN RED BLOOD CELL
     Indication: PROPHYLAXIS
     Route: 041
     Dates: start: 20080417, end: 20080418

REACTIONS (10)
  - Multi-organ failure [Fatal]
  - Anaemia [Not Recovered/Not Resolved]
  - White blood cell count decreased [Recovering/Resolving]
  - Immune thrombocytopenic purpura [Not Recovered/Not Resolved]
  - Seizure [Unknown]
  - Pancreatitis [Not Recovered/Not Resolved]
  - Disseminated intravascular coagulation [Fatal]
  - Colitis [Recovering/Resolving]
  - Pleural effusion [Not Recovered/Not Resolved]
  - Kaposi^s sarcoma AIDS related [Fatal]

NARRATIVE: CASE EVENT DATE: 20080429
